FAERS Safety Report 23760461 (Version 1)
Quarter: 2024Q2

REPORT INFORMATION
  Report Type: Spontaneous
  Country: NL (occurrence: NL)
  Receive Date: 20240419
  Receipt Date: 20240419
  Transmission Date: 20240716
  Serious: Yes (Life-Threatening, Other)
  Sender: FDA-Public Use
  Company Number: NL-LRB-00963692

PATIENT
  Age: 56 Year
  Sex: Female
  Weight: 55 kg

DRUGS (1)
  1. PREDNISOLONE [Suspect]
     Active Substance: PREDNISOLONE
     Indication: Anosmia
     Dosage: 1 DOSAGE FORM, ONCE A DAY (1X PD 1 STUK)
     Route: 065
     Dates: start: 20231212

REACTIONS (1)
  - Myocardial infarction [Recovering/Resolving]
